FAERS Safety Report 18614091 (Version 1)
Quarter: 2020Q4

REPORT INFORMATION
  Report Type: Spontaneous
  Country: FR (occurrence: FR)
  Receive Date: 20201214
  Receipt Date: 20201214
  Transmission Date: 20210114
  Serious: Yes (Other)
  Sender: FDA-Public Use
  Company Number: FR-ELI_LILLY_AND_COMPANY-FR202012003742

PATIENT
  Age: 78 Year
  Sex: Female

DRUGS (1)
  1. ALIMTA [Suspect]
     Active Substance: PEMETREXED DISODIUM
     Indication: LUNG ADENOCARCINOMA
     Dosage: UNK,1 EVERY THREE WEEKS
     Route: 041

REACTIONS (3)
  - Eyelid oedema [Recovered/Resolved]
  - Conjunctival haemorrhage [Not Recovered/Not Resolved]
  - Conjunctival oedema [Not Recovered/Not Resolved]

NARRATIVE: CASE EVENT DATE: 2020
